FAERS Safety Report 11068105 (Version 1)
Quarter: 2015Q2

REPORT INFORMATION
  Report Type: Report from Study
  Country: JP (occurrence: JP)
  Receive Date: 20150427
  Receipt Date: 20150427
  Transmission Date: 20150821
  Serious: Yes (Death, Other)
  Sender: FDA-Public Use
  Company Number: JP-ROCHE-1566631

PATIENT

DRUGS (4)
  1. TOCILIZUMAB [Suspect]
     Active Substance: TOCILIZUMAB
     Indication: RHEUMATOID ARTHRITIS
     Route: 065
  2. INFLIXIMAB [Suspect]
     Active Substance: INFLIXIMAB
     Indication: RHEUMATOID ARTHRITIS
     Route: 065
  3. ETANERCEPT [Suspect]
     Active Substance: ETANERCEPT
     Indication: RHEUMATOID ARTHRITIS
     Route: 065
  4. ADALIMUMAB [Suspect]
     Active Substance: ADALIMUMAB
     Indication: RHEUMATOID ARTHRITIS
     Route: 065

REACTIONS (18)
  - Oesophageal candidiasis [Unknown]
  - Death [Fatal]
  - Sepsis [Unknown]
  - Herpes zoster [Unknown]
  - Lung disorder [Unknown]
  - Gastrointestinal perforation [Unknown]
  - Pneumocystis jirovecii pneumonia [Unknown]
  - Arthritis infective [Unknown]
  - Infection [Unknown]
  - Bronchopulmonary aspergillosis [Unknown]
  - Skin infection [Unknown]
  - Cerebrovascular disorder [Unknown]
  - Urinary tract infection [Unknown]
  - Osteomyelitis [Unknown]
  - Cardiovascular disorder [Unknown]
  - Neoplasm malignant [Unknown]
  - Lung infection [Unknown]
  - Gastrointestinal infection [Unknown]
